FAERS Safety Report 4950844-2 (Version None)
Quarter: 2006Q1

REPORT INFORMATION
  Report Type: 
  Country: None (occurrence: None)
  Receive Date: 20060322
  Receipt Date: 20060308
  Transmission Date: 20060701
  Serious: Yes (Hospitalization, Other)
  Sender: FDA-Public Use
  Company Number: PHBS2006JP03656

PATIENT
  Age: 78 Year
  Sex: Male
  Weight: 56 kg

DRUGS (4)
  1. SOLU-MEDROL [Concomitant]
     Indication: INTERSTITIAL LUNG DISEASE
     Dosage: 500 MG/D
     Route: 042
     Dates: start: 20050511, end: 20050519
  2. PREDONINE [Concomitant]
     Indication: INTERSTITIAL LUNG DISEASE
     Dosage: 30 MG/D
     Route: 048
     Dates: start: 20050603, end: 20050701
  3. PREDONINE [Concomitant]
     Dosage: 20 MG/D
     Route: 048
     Dates: start: 20050701
  4. NEORAL [Suspect]
     Indication: INTERSTITIAL LUNG DISEASE
     Dosage: 75 MG/D
     Route: 048
     Dates: start: 20050518, end: 20051201

REACTIONS (15)
  - ALANINE AMINOTRANSFERASE INCREASED [None]
  - ASPARTATE AMINOTRANSFERASE INCREASED [None]
  - BETA-N-ACETYL-D-GLUCOSAMINIDASE ABNORMAL [None]
  - BLOOD BILIRUBIN INCREASED [None]
  - BRONCHOPULMONARY ASPERGILLOSIS [None]
  - C-REACTIVE PROTEIN INCREASED [None]
  - CHEST PAIN [None]
  - CREPITATIONS [None]
  - FUNGUS SEROLOGY TEST POSITIVE [None]
  - GAMMA-GLUTAMYLTRANSFERASE INCREASED [None]
  - HEPATIC FAILURE [None]
  - INFECTION [None]
  - OEDEMA PERIPHERAL [None]
  - PYREXIA [None]
  - WHITE BLOOD CELL COUNT INCREASED [None]
